FAERS Safety Report 10077226 (Version 1)
Quarter: 2014Q2

REPORT INFORMATION
  Report Type: Spontaneous
  Country: US (occurrence: US)
  Receive Date: 20140414
  Receipt Date: 20140414
  Transmission Date: 20141212
  Serious: No
  Sender: FDA-Public Use
  Company Number: US-BANPHARM-20130989

PATIENT
  Age: 31 Year
  Sex: Female
  Weight: 74.83 kg

DRUGS (1)
  1. NAPROXEN SODIUM 220 MG [Suspect]
     Indication: HEADACHE
     Dosage: 2 DF, TID
     Route: 048
     Dates: start: 201302, end: 201302

REACTIONS (2)
  - Drug ineffective [Unknown]
  - Incorrect dose administered [Unknown]
